FAERS Safety Report 7190162-8 (Version None)
Quarter: 2010Q4

REPORT INFORMATION
  Report Type: 
  Country: None (occurrence: None)
  Receive Date: 20101223
  Receipt Date: 20100208
  Transmission Date: 20110411
  Serious: No
  Sender: FDA-Public Use
  Company Number: US-MYLANLABS-2010S1002131

PATIENT
  Age: 38 Year
  Sex: Male
  Weight: 70.31 kg

DRUGS (4)
  1. CITALOPRAM HYDROBROMIDE [Suspect]
     Indication: DEPRESSION
     Route: 048
     Dates: start: 20090801, end: 20091101
  2. CITALOPRAM HYDROBROMIDE [Suspect]
     Route: 048
     Dates: start: 20091101, end: 20100101
  3. CALTRATE [Concomitant]
  4. ALEVE [Concomitant]
     Indication: HEADACHE

REACTIONS (4)
  - DISTURBANCE IN ATTENTION [None]
  - NAUSEA [None]
  - POLLAKIURIA [None]
  - THIRST [None]
